FAERS Safety Report 8105791-4 (Version None)
Quarter: 2012Q1

REPORT INFORMATION
  Report Type: 
  Country: None (occurrence: None)
  Receive Date: 20120201
  Receipt Date: 20120123
  Transmission Date: 20120608
  Serious: No
  Sender: FDA-Public Use
  Company Number: US-ASTRAZENECA-2011SE73762

PATIENT
  Age: 70 Year
  Sex: Female
  Weight: 59 kg

DRUGS (10)
  1. SEROQUEL [Suspect]
     Indication: BIPOLAR DISORDER
     Route: 048
  2. SEROQUEL [Suspect]
     Dosage: 50 TO 100 MG AT NIGHT
     Route: 048
  3. CLONAZEPAM [Suspect]
     Route: 048
  4. GEMFIBROZIL [Concomitant]
     Indication: BLOOD CHOLESTEROL ABNORMAL
  5. SEROQUEL [Suspect]
     Indication: SLEEP DISORDER
     Route: 048
  6. SEROQUEL [Suspect]
     Dosage: 50 TO 100 MG AT NIGHT
     Route: 048
  7. BETAXOLOL [Concomitant]
     Indication: HYPERTENSION
  8. ASPIRIN [Concomitant]
     Indication: CARDIAC DISORDER
  9. LITHIUM CARBONATE [Concomitant]
  10. OXYBUTYNIN [Concomitant]
     Indication: INCONTINENCE

REACTIONS (6)
  - OFF LABEL USE [None]
  - FEELING ABNORMAL [None]
  - ROAD TRAFFIC ACCIDENT [None]
  - INCORRECT DOSE ADMINISTERED [None]
  - DEPRESSED MOOD [None]
  - FATIGUE [None]
